FAERS Safety Report 23871994 (Version 2)
Quarter: 2024Q2

REPORT INFORMATION
  Report Type: Spontaneous
  Country: US (occurrence: US)
  Receive Date: 20240520
  Receipt Date: 20240612
  Transmission Date: 20240716
  Serious: Yes (Hospitalization, Other)
  Sender: FDA-Public Use
  Company Number: US-BRISTOL-MYERS SQUIBB COMPANY-2024-076070

PATIENT
  Age: 73 Year
  Sex: Male
  Weight: 76.6 kg

DRUGS (6)
  1. OPDIVO [Suspect]
     Active Substance: NIVOLUMAB
     Indication: Oesophageal carcinoma
     Route: 042
  2. OPDIVO [Suspect]
     Active Substance: NIVOLUMAB
     Indication: Bone cancer
  3. OPDIVO [Suspect]
     Active Substance: NIVOLUMAB
     Indication: Neoplasm malignant
  4. YERVOY [Suspect]
     Active Substance: IPILIMUMAB
     Indication: Oesophageal carcinoma
     Route: 042
  5. YERVOY [Suspect]
     Active Substance: IPILIMUMAB
     Indication: Bone cancer
  6. YERVOY [Suspect]
     Active Substance: IPILIMUMAB
     Indication: Neoplasm malignant

REACTIONS (4)
  - Cataract [Unknown]
  - Off label use [Unknown]
  - Fall [Unknown]
  - Malignant neoplasm progression [Unknown]

NARRATIVE: CASE EVENT DATE: 20240524
